FAERS Safety Report 7243270-7 (Version None)
Quarter: 2011Q1

REPORT INFORMATION
  Report Type: 
  Country: None (occurrence: None)
  Receive Date: 20110125
  Receipt Date: 20110119
  Transmission Date: 20110831
  Serious: Yes (Other)
  Sender: FDA-Public Use
  Company Number: DE-AMGEN-DEUCT2011003137

PATIENT
  Age: 70 Year
  Sex: Male

DRUGS (5)
  1. PANITUMUMAB [Suspect]
     Indication: GASTROOESOPHAGEAL CANCER
     Dosage: 9 MG/KG, Q2WK
     Dates: start: 20101207
  2. EPIRUBICIN [Suspect]
     Dosage: 50 MG/M2, UNK
     Route: 042
     Dates: start: 20101207
  3. CISPLATIN [Suspect]
     Dosage: 60 MG/M2, UNK
     Route: 042
     Dates: start: 20101207
  4. CAPECITABINE [Suspect]
     Dosage: 625 MG/M2, UNK
     Route: 048
     Dates: start: 20101207, end: 20110112
  5. CISPLATIN [Suspect]
     Dosage: 60 MG/M2, UNK
     Route: 042
     Dates: start: 20101228

REACTIONS (1)
  - PHIMOSIS [None]
